FAERS Safety Report 7663082 (Version 2)
Quarter: 2013Q4

REPORT INFORMATION
  Report Type: Spontaneous
  Country: US (occurrence: US)
  Receive Date: 20101110
  Receipt Date: 20131108
  Transmission Date: 20140711
  Serious: Yes (Other)
  Sender: FDA-Public Use
  Company Number: US-BAYER-201040105NA

PATIENT
  Age: 23 Year
  Sex: Female

DRUGS (11)
  1. YASMIN [Suspect]
     Route: 048
     Dates: start: 200611, end: 200807
  2. OCELLA [Suspect]
     Route: 048
     Dates: start: 200807, end: 200905
  3. ONDANSETRON [Concomitant]
  4. ALDARA [Concomitant]
  5. SOLODYN [Concomitant]
  6. VALTREX [Concomitant]
  7. CLARINEX [DESLORATADINE] [Concomitant]
  8. DICYCLOMINE [Concomitant]
  9. BACLOFEN [Concomitant]
  10. PROMETHAZINE [Concomitant]
  11. TAZORAC [Concomitant]

REACTIONS (2)
  - Gallbladder disorder [Unknown]
  - Biliary dyskinesia [None]
